FAERS Safety Report 5587842-4 (Version None)
Quarter: 2008Q1

REPORT INFORMATION
  Report Type: 
  Country: None (occurrence: None)
  Receive Date: 20080111
  Receipt Date: 20080108
  Transmission Date: 20080703
  Serious: Yes (Hospitalization)
  Sender: FDA-Public Use
  Company Number: JP-SP-2008-00074

PATIENT
  Age: 68 Year
  Sex: Male

DRUGS (6)
  1. IMMUCYST [Suspect]
     Indication: CARCINOMA IN SITU OF BLADDER
     Route: 065
     Dates: start: 20060925, end: 20061101
  2. IMMUCYST [Suspect]
     Route: 065
     Dates: start: 20060925, end: 20061101
  3. SULBACTAM SODIUM AMPICILLIN SODIUM [Concomitant]
     Dates: start: 20060925, end: 20061101
  4. PENTAZOCINE LACTATE [Concomitant]
     Dates: start: 20060925, end: 20061101
  5. HYDROXYZINE HYDROCHLORIDE [Concomitant]
     Dates: start: 20060925, end: 20061101
  6. PRULIFLOXACIN [Concomitant]
     Dates: start: 20061004, end: 20061008

REACTIONS (2)
  - PYREXIA [None]
  - URINARY RETENTION [None]
